FAERS Safety Report 24059689 (Version 1)
Quarter: 2024Q3

REPORT INFORMATION
  Report Type: Spontaneous
  Country: US (occurrence: None)
  Receive Date: 20240704
  Receipt Date: 20240704
  Transmission Date: 20241016
  Serious: Yes (Life-Threatening, Hospitalization, Other)
  Sender: Public
  Company Number: None

PATIENT
  Age: 39 Year
  Sex: Male
  Weight: 85 kg

DRUGS (4)
  1. BACTRIM [Suspect]
     Active Substance: SULFAMETHOXAZOLE\TRIMETHOPRIM
     Indication: Toxoplasmosis
     Dosage: OTHER FREQUENCY : ONCE;?
     Route: 048
     Dates: start: 20240627, end: 20240627
  2. FOSCARNET [Concomitant]
     Active Substance: FOSCARNET
     Dates: start: 20240627, end: 20240703
  3. LIDOCAINE [Concomitant]
     Active Substance: LIDOCAINE
     Dates: start: 20240627, end: 20240703
  4. PROPARACAINE [Concomitant]
     Active Substance: PROPARACAINE
     Dates: start: 20240627, end: 20240703

REACTIONS (10)
  - Chills [None]
  - Anxiety [None]
  - Cyanosis [None]
  - Pallor [None]
  - Livedo reticularis [None]
  - Hypotension [None]
  - Flushing [None]
  - Blood lactic acid increased [None]
  - Mental status changes [None]
  - Distributive shock [None]

NARRATIVE: CASE EVENT DATE: 20240628
